FAERS Safety Report 20734633 (Version 1)
Quarter: 2022Q2

REPORT INFORMATION
  Report Type: Spontaneous
  Country: US (occurrence: US)
  Receive Date: 20220421
  Receipt Date: 20220421
  Transmission Date: 20220721
  Serious: Yes (Other)
  Sender: FDA-Public Use
  Company Number: US-drreddys-LIT/USA/22/0148976

PATIENT
  Sex: Female

DRUGS (15)
  1. VINORELBINE [Suspect]
     Active Substance: VINORELBINE TARTRATE
     Indication: Adenocarcinoma metastatic
     Dosage: 2 CYCLES OF WEEKLY
  2. CARBOPLATIN [Concomitant]
     Active Substance: CARBOPLATIN
     Indication: Neoplasm progression
  3. CARBOPLATIN [Concomitant]
     Active Substance: CARBOPLATIN
     Indication: Adenocarcinoma metastatic
  4. PEMETREXED [Concomitant]
     Active Substance: PEMETREXED
     Indication: Adenocarcinoma metastatic
  5. PEMETREXED [Concomitant]
     Active Substance: PEMETREXED
     Indication: Neoplasm progression
     Dates: start: 201912
  6. PEMETREXED [Concomitant]
     Active Substance: PEMETREXED
     Indication: Hepatic cancer
  7. PEMETREXED [Concomitant]
     Active Substance: PEMETREXED
     Indication: Metastases to bone
  8. PEMETREXED [Concomitant]
     Active Substance: PEMETREXED
     Indication: Non-small cell lung cancer
  9. CRIZOTINIB [Concomitant]
     Active Substance: CRIZOTINIB
     Indication: Adenocarcinoma metastatic
     Dates: start: 201106
  10. CERITINIB [Concomitant]
     Active Substance: CERITINIB
     Indication: Neoplasm progression
  11. ATEZOLIZUMAB [Concomitant]
     Active Substance: ATEZOLIZUMAB
     Indication: Neoplasm progression
  12. DOCETAXEL [Concomitant]
     Active Substance: DOCETAXEL
     Indication: Neoplasm progression
  13. ALECTINIB [Concomitant]
     Active Substance: ALECTINIB
     Indication: Neoplasm progression
     Dates: end: 202103
  14. BRIGATINIB [Concomitant]
     Active Substance: BRIGATINIB
     Indication: Neoplasm progression
  15. TRASTUZUMAB [Concomitant]
     Active Substance: TRASTUZUMAB
     Indication: Adenocarcinoma metastatic
     Dates: end: 202103

REACTIONS (1)
  - Drug ineffective [Unknown]
